FAERS Safety Report 6653642-7 (Version None)
Quarter: 2010Q1

REPORT INFORMATION
  Report Type: 
  Country: None (occurrence: None)
  Receive Date: 20100326
  Receipt Date: 20100317
  Transmission Date: 20100710
  Serious: Yes (Death, Other)
  Sender: FDA-Public Use
  Company Number: JP-NOVOPROD-304056

PATIENT
  Sex: Female
  Weight: 2.6 kg

DRUGS (8)
  1. NOVOSEVEN [Suspect]
     Indication: PLEURAL HAEMORRHAGE
     Dosage: 23 MG, QID
     Dates: start: 20070709, end: 20070710
  2. FIBRINASE [Concomitant]
  3. MENATETRENONE [Concomitant]
     Dosage: 6 MG, QD
     Route: 042
     Dates: start: 20070709, end: 20070709
  4. TRANSAMIN [Concomitant]
     Dosage: /IV
     Route: 042
     Dates: start: 20070709, end: 20070709
  5. RED BLOOD CELLS [Concomitant]
     Dosage: 786.8ML/DIV
     Dates: start: 20070709, end: 20070709
  6. RED BLOOD CELLS [Concomitant]
     Dosage: 1019.2ML
     Dates: start: 20070710, end: 20070710
  7. PLATELETS [Concomitant]
     Dosage: 104.1ML/DIV
     Dates: start: 20070709, end: 20070709
  8. PLASMA [Concomitant]
     Dosage: 35.8ML
     Dates: start: 20070709, end: 20070709

REACTIONS (2)
  - DRUG INEFFECTIVE [None]
  - HYPOXIA [None]
